FAERS Safety Report 5145233-4 (Version None)
Quarter: 2006Q4

REPORT INFORMATION
  Report Type: 
  Country: None (occurrence: None)
  Receive Date: 20061031
  Receipt Date: 20061018
  Transmission Date: 20070319
  Serious: Yes (Other)
  Sender: FDA-Public Use
  Company Number: 30410

PATIENT
  Age: 39 Year
  Sex: Female

DRUGS (1)
  1. ALDARA [Suspect]
     Indication: BASAL CELL CARCINOMA
     Dosage: (5 IN 1 WEEK(S)), TOPICAL
     Route: 061
     Dates: start: 20060105, end: 20060215

REACTIONS (6)
  - APPLICATION SITE PAIN [None]
  - APPLICATION SITE REACTION [None]
  - APPLICATION SITE SCAB [None]
  - IMPAIRED HEALING [None]
  - SQUAMOUS CELL CARCINOMA [None]
  - ULCER [None]
